FAERS Safety Report 8184148-4 (Version None)
Quarter: 2012Q1

REPORT INFORMATION
  Report Type: 
  Country: None (occurrence: None)
  Receive Date: 20120305
  Receipt Date: 20120222
  Transmission Date: 20120608
  Serious: Yes (Death, Other)
  Sender: FDA-Public Use
  Company Number: DZ-ROCHE-782377

PATIENT
  Sex: Female

DRUGS (2)
  1. AVASTIN [Suspect]
     Indication: BREAST CANCER METASTATIC
     Dosage: FREQUENCY : PER CURE
     Route: 065
     Dates: start: 20110313, end: 20110608
  2. GEMCITABINE [Suspect]
     Indication: BREAST CANCER METASTATIC
     Dosage: FREQUENCY : PER CURE
     Route: 065
     Dates: start: 20100905, end: 20110605

REACTIONS (4)
  - HYPERTENSION [None]
  - DISEASE PROGRESSION [None]
  - THROMBOCYTOPENIA [None]
  - CHLOASMA [None]
